FAERS Safety Report 7587169-5 (Version None)
Quarter: 2011Q3

REPORT INFORMATION
  Report Type: 
  Country: None (occurrence: None)
  Receive Date: 20110701
  Receipt Date: 20110617
  Transmission Date: 20111222
  Serious: Yes (Other)
  Sender: FDA-Public Use
  Company Number: JP-WATSON-2011-09532

PATIENT
  Sex: Male

DRUGS (3)
  1. FLUOROURACIL [Suspect]
     Indication: OESOPHAGEAL CARCINOMA
     Dosage: 750MG/MM DASY 1-5
     Route: 042
  2. DOCETAXEL [Suspect]
     Indication: OESOPHAGEAL CARCINOMA
     Dosage: 75 MG/MM DAY 1
     Route: 042
  3. CISPLATIN [Suspect]
     Indication: OESOPHAGEAL CARCINOMA
     Dosage: 75 MG/MM DAY 1
     Route: 042

REACTIONS (12)
  - THROMBOCYTOPENIA [None]
  - DECREASED APPETITE [None]
  - VOMITING [None]
  - MUCOSAL INFLAMMATION [None]
  - NAUSEA [None]
  - NEUTROPENIA [None]
  - STOMATITIS [None]
  - FATIGUE [None]
  - LEUKOPENIA [None]
  - HAEMOGLOBIN DECREASED [None]
  - DIARRHOEA [None]
  - MALAISE [None]
